FAERS Safety Report 24810570 (Version 1)
Quarter: 2025Q1

REPORT INFORMATION
  Report Type: Spontaneous
  Country: IE (occurrence: None)
  Receive Date: 20250104
  Receipt Date: 20250104
  Transmission Date: 20250409
  Serious: Yes (Life-Threatening, Disabling)
  Sender: FDA-CTU
  Company Number: None

PATIENT
  Age: 15 Year
  Sex: Male

DRUGS (2)
  1. MONTELUKAST SODIUM [Suspect]
     Active Substance: MONTELUKAST SODIUM
     Dosage: 1 TABLET AT BEDTIME ORAL ?
     Route: 048
  2. SERETIDE [Concomitant]
     Active Substance: FLUTICASONE PROPIONATE\SALMETEROL XINAFOATE

REACTIONS (9)
  - Suicidal ideation [None]
  - Homicidal ideation [None]
  - Anger [None]
  - Anxiety [None]
  - Social avoidant behaviour [None]
  - Lethargy [None]
  - Impulsive behaviour [None]
  - Withdrawal syndrome [None]
  - Abnormal behaviour [None]

NARRATIVE: CASE EVENT DATE: 20240410
